FAERS Safety Report 15439113 (Version 1)
Quarter: 2018Q3

REPORT INFORMATION
  Report Type: Spontaneous
  Country: IE (occurrence: IE)
  Receive Date: 20180924
  Receipt Date: 20180924
  Transmission Date: 20181010
  Serious: Yes (Life-Threatening)
  Sender: FDA-Public Use
  Company Number: None

PATIENT
  Age: 34 Year
  Sex: Female

DRUGS (9)
  1. OMEGA 3 [Concomitant]
     Active Substance: OMEGA-3 FATTY ACIDS
  2. CYMBALTA [Concomitant]
     Active Substance: DULOXETINE HYDROCHLORIDE
  3. ABILIFY [Concomitant]
     Active Substance: ARIPIPRAZOLE
  4. CALCIUM AND MAGNESIUM [Concomitant]
     Active Substance: CALCIUM\MAGNESIUM
  5. DIANETTE PILL [Concomitant]
  6. ZOPLICLONE [Concomitant]
  7. MULTI VITAMIN AND MINERAL [Concomitant]
  8. WELLBUTRIN [Suspect]
     Active Substance: BUPROPION HYDROCHLORIDE
     Indication: DEPRESSION
     Dosage: ?          QUANTITY:1 TABLET(S);?
     Route: 048
     Dates: start: 20180824, end: 20180920
  9. WELLBUTRIN [Suspect]
     Active Substance: BUPROPION HYDROCHLORIDE
     Indication: BIPOLAR DISORDER
     Dosage: ?          QUANTITY:1 TABLET(S);?
     Route: 048
     Dates: start: 20180824, end: 20180920

REACTIONS (28)
  - Agitation [None]
  - Condition aggravated [None]
  - Depression [None]
  - Rash [None]
  - Hyperacusis [None]
  - Disorientation [None]
  - Nightmare [None]
  - Head discomfort [None]
  - Dissociation [None]
  - Intentional self-injury [None]
  - Rash erythematous [None]
  - Exfoliative rash [None]
  - Movement disorder [None]
  - Anger [None]
  - Sleep disorder [None]
  - Fear [None]
  - Suicide attempt [None]
  - Muscle tightness [None]
  - Rash pruritic [None]
  - Tremor [None]
  - Confusional state [None]
  - Sleep talking [None]
  - Tinnitus [None]
  - Autoscopy [None]
  - Paraesthesia [None]
  - Disturbance in attention [None]
  - Sensory loss [None]
  - Thinking abnormal [None]

NARRATIVE: CASE EVENT DATE: 20180920
